FAERS Safety Report 5676238-2 (Version None)
Quarter: 2008Q1

REPORT INFORMATION
  Report Type: 
  Country: None (occurrence: None)
  Receive Date: 20080321
  Receipt Date: 20080311
  Transmission Date: 20080703
  Serious: Yes (Other)
  Sender: FDA-Public Use
  Company Number: US-PFIZER INC-2004001325

PATIENT
  Sex: Male
  Weight: 63.5 kg

DRUGS (3)
  1. ZOLOFT [Suspect]
     Indication: DEPRESSION
     Dosage: DAILY DOSE:150MG
     Route: 048
     Dates: start: 20010101, end: 20040101
  2. ZOLOFT [Suspect]
     Indication: ANXIETY
  3. ZOLOFT [Suspect]
     Indication: INSOMNIA

REACTIONS (15)
  - ABNORMAL BEHAVIOUR [None]
  - AGGRESSION [None]
  - ANGER [None]
  - DEPRESSION [None]
  - DIZZINESS [None]
  - DRUG WITHDRAWAL SYNDROME [None]
  - FEELING ABNORMAL [None]
  - HEADACHE [None]
  - PARAESTHESIA [None]
  - PATIENT ISOLATION [None]
  - PERSONALITY CHANGE [None]
  - SOMNOLENCE [None]
  - THINKING ABNORMAL [None]
  - VERTIGO [None]
  - WEIGHT INCREASED [None]
